FAERS Safety Report 7211691-4 (Version None)
Quarter: 2011Q1

REPORT INFORMATION
  Report Type: 
  Country: None (occurrence: None)
  Receive Date: 20110105
  Receipt Date: 20110103
  Transmission Date: 20110831
  Serious: Yes (Death, Other)
  Sender: FDA-Public Use
  Company Number: FR-PFIZER INC-2010143397

PATIENT
  Age: 70 Year
  Sex: Male
  Weight: 58 kg

DRUGS (5)
  1. VFEND [Suspect]
     Indication: ABSCESS FUNGAL
     Dosage: 200 MG, 2X/DAY
     Route: 048
     Dates: start: 20100820, end: 20101009
  2. IKOREL [Concomitant]
     Indication: ANGINA PECTORIS
     Dosage: UNK
     Route: 048
  3. PREVISCAN [Concomitant]
     Indication: ANGINA PECTORIS
     Dosage: 20 MG, 1X/DAY
     Route: 048
  4. VFEND [Suspect]
     Indication: NEOPLASM
  5. TRIATEC [Concomitant]
     Indication: ANGINA PECTORIS
     Dosage: 2.5 MG, 1X/DAY
     Route: 048

REACTIONS (3)
  - HYPERCALCAEMIA [None]
  - HEPATITIS CHOLESTATIC [None]
  - LUNG CANCER METASTATIC [None]
